FAERS Safety Report 5093804-6 (Version None)
Quarter: 2006Q3

REPORT INFORMATION
  Report Type: 
  Country: None (occurrence: None)
  Receive Date: 20060831
  Receipt Date: 20060824
  Transmission Date: 20061208
  Serious: Yes (Hospitalization)
  Sender: FDA-Public Use
  Company Number: US-JNJFOC-20060805585

PATIENT
  Age: 54 Year
  Sex: Female
  Weight: 56.7 kg

DRUGS (2)
  1. TOPAMAX [Suspect]
     Indication: MIGRAINE PROPHYLAXIS
     Route: 048
  2. COHASH [Concomitant]
     Indication: PHYTOTHERAPY

REACTIONS (4)
  - ADVERSE EVENT [None]
  - DYSARTHRIA [None]
  - NAUSEA [None]
  - VOMITING [None]
